FAERS Safety Report 6057633-9 (Version None)
Quarter: 2009Q1

REPORT INFORMATION
  Report Type: 
  Country: None (occurrence: None)
  Receive Date: 20090129
  Receipt Date: 20080804
  Transmission Date: 20090719
  Serious: No
  Sender: FDA-Public Use
  Company Number: US-BAUSCH-2008BL003356

PATIENT
  Age: 61 Year
  Sex: Female

DRUGS (2)
  1. BACITRACIN OPHTHALMIC OINTMENT [Suspect]
     Indication: EYE INFECTION
     Route: 047
     Dates: start: 20080731, end: 20080803
  2. BACITRACIN OPHTHALMIC OINTMENT [Suspect]
     Indication: EYE SWELLING
     Route: 047
     Dates: start: 20080731, end: 20080803

REACTIONS (12)
  - CONDITION AGGRAVATED [None]
  - DRUG HYPERSENSITIVITY [None]
  - DRY SKIN [None]
  - ERYTHEMA [None]
  - ERYTHEMA OF EYELID [None]
  - EXFOLIATIVE RASH [None]
  - EYE DISCHARGE [None]
  - EYE SWELLING [None]
  - HEADACHE [None]
  - PAIN [None]
  - PRURITUS [None]
  - RASH ERYTHEMATOUS [None]
